FAERS Safety Report 21822422 (Version 2)
Quarter: 2023Q1

REPORT INFORMATION
  Report Type: Spontaneous
  Country: US (occurrence: US)
  Receive Date: 20230105
  Receipt Date: 20230116
  Transmission Date: 20230418
  Serious: Yes (Hospitalization)
  Sender: FDA-Public Use
  Company Number: US-SANOFI-01428056

PATIENT
  Age: 66 Year
  Sex: Female

DRUGS (1)
  1. LANTUS SOLOSTAR [Suspect]
     Active Substance: INSULIN GLARGINE
     Indication: Type 2 diabetes mellitus
     Dosage: 55 IU, QD

REACTIONS (7)
  - Blood glucose increased [Unknown]
  - Upper limb fracture [Unknown]
  - Pain in extremity [Unknown]
  - Skin discolouration [Unknown]
  - Rash macular [Unknown]
  - Pruritus [Unknown]
  - Vision blurred [Recovering/Resolving]
